FAERS Safety Report 9692992 (Version 1)
Quarter: 2013Q4

REPORT INFORMATION
  Report Type: Spontaneous
  Country: CN (occurrence: CN)
  Receive Date: 20131118
  Receipt Date: 20131118
  Transmission Date: 20140711
  Serious: Yes (Other)
  Sender: FDA-Public Use
  Company Number: CN-ASTELLAS-2013JP012624

PATIENT
  Age: 38 Year
  Sex: Female
  Weight: 61 kg

DRUGS (2)
  1. PROTOPIC [Suspect]
     Indication: ECZEMA
     Dosage: 0.03 %, UNK
     Route: 061
     Dates: start: 20131101, end: 20131105
  2. DESONIDE [Suspect]
     Indication: ECZEMA
     Dosage: UNK
     Route: 061
     Dates: start: 20131101, end: 20131105

REACTIONS (3)
  - Off label use [Recovered/Resolved]
  - Application site pain [Recovering/Resolving]
  - Application site dryness [Recovering/Resolving]
